FAERS Safety Report 18945575 (Version 1)
Quarter: 2021Q1

REPORT INFORMATION
  Report Type: Report from Study
  Country: US (occurrence: US)
  Receive Date: 20210226
  Receipt Date: 20210226
  Transmission Date: 20210420
  Serious: Yes (Other)
  Sender: FDA-Public Use
  Company Number: US-AMGEN-USASL2020013289

PATIENT
  Age: 63 Year
  Sex: Female

DRUGS (4)
  1. REPATHA [Suspect]
     Active Substance: EVOLOCUMAB
     Dosage: 140 MILLIGRAM, QMO
     Route: 065
  2. REPATHA [Suspect]
     Active Substance: EVOLOCUMAB
     Indication: HYPERCHOLESTEROLAEMIA
     Dosage: 140 MILLIGRAM, QMO
     Route: 065
     Dates: start: 202004
  3. REPATHA [Suspect]
     Active Substance: EVOLOCUMAB
     Indication: BLOOD CHOLESTEROL INCREASED
     Dosage: 140 MILLIGRAM, QMO
     Route: 065
  4. REPATHA [Suspect]
     Active Substance: EVOLOCUMAB
     Indication: HYPERLIPIDAEMIA
     Dosage: 140 MILLIGRAM, Q2WK
     Route: 065
     Dates: start: 20191206

REACTIONS (20)
  - Muscular weakness [Unknown]
  - Pseudoparalysis [Unknown]
  - Fatigue [Unknown]
  - Sneezing [Unknown]
  - Alopecia [Unknown]
  - Feeling abnormal [Unknown]
  - Malaise [Unknown]
  - Arthralgia [Unknown]
  - Back disorder [Unknown]
  - Pain [Unknown]
  - Muscle spasms [Unknown]
  - Injection site pain [Unknown]
  - Accidental exposure to product [Unknown]
  - Myalgia [Recovered/Resolved]
  - Injection site bruising [Unknown]
  - Stress [Unknown]
  - Blood cholesterol decreased [Unknown]
  - Injection site swelling [Unknown]
  - Gait inability [Unknown]
  - Dry skin [Unknown]

NARRATIVE: CASE EVENT DATE: 20191206
